FAERS Safety Report 7935127-0 (Version None)
Quarter: 2011Q4

REPORT INFORMATION
  Report Type: 
  Country: None (occurrence: None)
  Receive Date: 20111122
  Receipt Date: 20111116
  Transmission Date: 20120403
  Serious: Yes (Hospitalization, Other)
  Sender: FDA-Public Use
  Company Number: PHEH2009US01388

PATIENT
  Sex: Female

DRUGS (38)
  1. AREDIA [Suspect]
     Indication: MULTIPLE MYELOMA
     Dosage: 90 MG, EVERY 3 MONTHS
     Dates: start: 20000530
  2. HYDROCHLOROTHIAZIDE [Concomitant]
  3. ZOFRAN [Concomitant]
  4. THALIDOMIDE [Concomitant]
     Dates: start: 20050301, end: 20090716
  5. FLUCONAZOLE [Concomitant]
  6. TISSUE PLASMINOGEN ACTIVATOR, RECOMBINATIVE [Concomitant]
  7. RESTYLANE [Concomitant]
  8. TRIAMTERENE AND HYDROCHLOROTHIAZIDE [Concomitant]
  9. ZOLOFT [Concomitant]
     Dosage: 50 MG, DAILY
  10. PEPCID [Concomitant]
     Dosage: 20 MG, BID
  11. ACETYLSALICYLIC ACID SRT [Concomitant]
     Dosage: 81 MG, DAILY
     Route: 048
  12. LISINOPRIL AND HYDROCHLOROTHIAZIDE [Concomitant]
  13. DECADRON [Concomitant]
  14. IMIPENEM [Concomitant]
  15. LEVAQUIN [Concomitant]
  16. VICODIN [Concomitant]
  17. DOXYCYCLINE [Concomitant]
  18. MELPHALAN HYDROCHLORIDE [Concomitant]
  19. PROCRIT                            /00909301/ [Concomitant]
  20. BACTRIM [Concomitant]
  21. CHLORHEXIDINE GLUCONATE [Concomitant]
  22. REVLIMID [Concomitant]
     Dosage: 25 MG, DAILY
     Route: 048
  23. FLAGYL [Concomitant]
  24. PENICILLIN ^GRUNENTHAL^ [Concomitant]
  25. PROMETHAZINE DM [Concomitant]
  26. AMIFOSTINE [Concomitant]
  27. VALTREX [Concomitant]
  28. ATIVAN [Concomitant]
  29. COMPAZINE [Concomitant]
  30. AMPICILLIN [Concomitant]
     Dosage: 500 MG,
  31. PREMPRO [Concomitant]
  32. AUGMENTIN '125' [Concomitant]
  33. SULFAMETHOXAZOLE [Concomitant]
  34. PRILOSEC [Concomitant]
  35. ACYCLOVIR [Concomitant]
  36. CIPRO [Concomitant]
     Dosage: 500 MG,
  37. MAGIC MOUTHWASH [Concomitant]
  38. BIAXIN XL [Concomitant]

REACTIONS (56)
  - OSTEONECROSIS OF JAW [None]
  - COUGH [None]
  - PNEUMONIA [None]
  - NEUROPATHY PERIPHERAL [None]
  - PAIN [None]
  - HYPERTENSION [None]
  - NAUSEA [None]
  - OSTEOPOROSIS [None]
  - PRIMARY SEQUESTRUM [None]
  - RENAL CYST [None]
  - PAIN IN JAW [None]
  - URETHRAL OBSTRUCTION [None]
  - NEPHROLITHIASIS [None]
  - BREAST MASS [None]
  - EMOTIONAL DISTRESS [None]
  - PARAESTHESIA ORAL [None]
  - MUCOSAL INFLAMMATION [None]
  - SQUAMOUS CELL CARCINOMA [None]
  - NEOPLASM MALIGNANT [None]
  - LICHENOID KERATOSIS [None]
  - HEADACHE [None]
  - HYPERLIPIDAEMIA [None]
  - HYPOKALAEMIA [None]
  - CARDIOMEGALY [None]
  - SCAR [None]
  - ANXIETY [None]
  - LIFE EXPECTANCY SHORTENED [None]
  - INJURY [None]
  - FLANK PAIN [None]
  - DISCOMFORT [None]
  - EAR PAIN [None]
  - SINUS CONGESTION [None]
  - MELANOCYTIC NAEVUS [None]
  - VAGINITIS BACTERIAL [None]
  - LUNG INFILTRATION [None]
  - ATELECTASIS [None]
  - SYNCOPE [None]
  - ADRENAL INSUFFICIENCY [None]
  - FOOT DEFORMITY [None]
  - BASAL CELL CARCINOMA [None]
  - ANHEDONIA [None]
  - PHYSICAL DISABILITY [None]
  - FISTULA [None]
  - UTERINE PROLAPSE [None]
  - HYPERKERATOSIS [None]
  - HAEMATOMA [None]
  - PANCYTOPENIA [None]
  - ARTERIOSCLEROSIS CORONARY ARTERY [None]
  - SPINAL OSTEOARTHRITIS [None]
  - MASTICATION DISORDER [None]
  - BONE DISORDER [None]
  - VOMITING [None]
  - OSTEOPENIA [None]
  - INFECTIOUS DISEASE CARRIER [None]
  - BACK PAIN [None]
  - SEPSIS [None]
